FAERS Safety Report 17362064 (Version 1)
Quarter: 2020Q1

REPORT INFORMATION
  Report Type: Spontaneous
  Country: US (occurrence: US)
  Receive Date: 20200131
  Receipt Date: 20200131
  Transmission Date: 20200409
  Serious: Yes (Life-Threatening, Other)
  Sender: FDA-Public Use
  Company Number: None

PATIENT
  Age: 59 Year
  Sex: Male
  Weight: 76.5 kg

DRUGS (18)
  1. PANTOPRAZOLE 40MG [Concomitant]
     Active Substance: PANTOPRAZOLE SODIUM
  2. FLONASE [Concomitant]
     Active Substance: FLUTICASONE PROPIONATE
  3. CALOGEN [Concomitant]
  4. LEVOCETIRIZINE 5MG [Concomitant]
     Active Substance: LEVOCETIRIZINE
  5. BACOPA MONNIERI WHOLE\GERANIUM\RAUWOLFIA [Concomitant]
     Active Substance: BACOPA MONNIERI WHOLE\GERANIUM\RAUWOLFIA
  6. L ARGININE [Concomitant]
     Active Substance: ARGININE
  7. B-100 COMPLEX [Concomitant]
     Active Substance: DEXPANTHENOL\NIACINAMIDE\PYRIDOXINE HYDROCHLORIDE\RIBOFLAVIN 5^-PHOSPHATE SODIUM\THIAMINE HYDROCHLORIDE
  8. VITAMIN B12 [Concomitant]
     Active Substance: CYANOCOBALAMIN
  9. MSM [Concomitant]
     Active Substance: DIMETHYL SULFONE
  10. VITAMIN C [Concomitant]
     Active Substance: ASCORBIC ACID
  11. VITAMIN D3 [Concomitant]
     Active Substance: CHOLECALCIFEROL
  12. CLOFAZIMINE. [Concomitant]
     Active Substance: CLOFAZIMINE
  13. JUICE PLUS VEGETABLE AND FRUIT [Concomitant]
  14. RANITIDINE. [Suspect]
     Active Substance: RANITIDINE
     Indication: GASTROOESOPHAGEAL REFLUX DISEASE
     Dosage: ?          QUANTITY:1 TABLET(S);?
     Route: 048
     Dates: start: 20171218, end: 20191207
  15. MULTI-VITAMIN [Concomitant]
     Active Substance: .ALPHA.-TOCOPHEROL ACETATE, DL-\ASCORBIC ACID\CYANOCOBALAMIN\FLUORIDE ION\FOLIC ACID\NIACIN\PYRIDOXINE\RIBOFLAVIN\THIAMINE\VITAMIN A\VITAMIN D
  16. CINNAMON. [Concomitant]
     Active Substance: CINNAMON
  17. FOLIC ACID. [Concomitant]
     Active Substance: FOLIC ACID
  18. L CARNITINE [Concomitant]
     Active Substance: LEVOCARNITINE

REACTIONS (1)
  - Mantle cell lymphoma [None]

NARRATIVE: CASE EVENT DATE: 20190801
